FAERS Safety Report 7828443-4 (Version None)
Quarter: 2011Q4

REPORT INFORMATION
  Report Type: 
  Country: None (occurrence: None)
  Receive Date: 20111020
  Receipt Date: 20111011
  Transmission Date: 20120403
  Serious: Yes (Other)
  Sender: FDA-Public Use
  Company Number: US-BAYER-2011-099156

PATIENT
  Age: 65 Year
  Sex: Female
  Weight: 113.38 kg

DRUGS (1)
  1. ALEVE (CAPLET) [Suspect]
     Indication: ARTHRITIS
     Dosage: 2 DF, QD
     Route: 048

REACTIONS (2)
  - HAEMOPTYSIS [None]
  - NASOPHARYNGITIS [None]
